FAERS Safety Report 4882103-0 (Version None)
Quarter: 2006Q1

REPORT INFORMATION
  Report Type: 
  Country: None (occurrence: None)
  Receive Date: 20060112
  Receipt Date: 20060104
  Transmission Date: 20060701
  Serious: Yes (Other)
  Sender: FDA-Public Use
  Company Number: 2006003128

PATIENT
  Sex: Female

DRUGS (4)
  1. DILANTIN [Suspect]
     Indication: ILL-DEFINED DISORDER
     Dosage: 200 MG (200 MG, 1 IN 1 D)
     Dates: start: 19970101
  2. NEURONTIN [Suspect]
     Indication: ILL-DEFINED DISORDER
     Dosage: 300 MG (300 MG, 1 IN 1 D)
  3. KARVEA (IRBESARTAN) [Concomitant]
  4. TENORMIN [Concomitant]

REACTIONS (2)
  - HEPATIC ENZYME INCREASED [None]
  - NEOPLASM SKIN [None]
